FAERS Safety Report 17528986 (Version 9)
Quarter: 2020Q4

REPORT INFORMATION
  Report Type: Report from Study
  Country: CO (occurrence: CO)
  Receive Date: 20200311
  Receipt Date: 20201113
  Transmission Date: 20210113
  Serious: Yes (Hospitalization, Other)
  Sender: FDA-Public Use
  Company Number: CO-ASTELLAS-2020US008696

PATIENT
  Age: 28 Year
  Sex: Female

DRUGS (10)
  1. TACROLIMUS. [Suspect]
     Active Substance: TACROLIMUS
     Route: 048
     Dates: start: 20200708
  2. PIPERACILLIN/TAZOBACTAM [Suspect]
     Active Substance: PIPERACILLIN SODIUM\TAZOBACTAM SODIUM
     Indication: KIDNEY INFECTION
     Dosage: UNK UNK, UNKNOWN FREQ.
     Route: 042
  3. TACROLIMUS. [Suspect]
     Active Substance: TACROLIMUS
     Indication: RENAL TRANSPLANT
     Dosage: 5 MG, ONCE DAILY (1 CAPSULE OF 5 MG)
     Route: 048
     Dates: start: 20200225
  4. TACROLIMUS. [Suspect]
     Active Substance: TACROLIMUS
     Dosage: 6 MG, ONCE DAILY (1 MG CAPSULE AND 5 MG CAPSULE)
     Route: 048
  5. PIPERACILLIN/TAZOBACTAM [Suspect]
     Active Substance: PIPERACILLIN SODIUM\TAZOBACTAM SODIUM
     Indication: OOPHORITIS
  6. TACROLIMUS. [Suspect]
     Active Substance: TACROLIMUS
     Dosage: 6 MG, ONCE DAILY (6 CAPSULES OF 1 MG)
     Route: 048
     Dates: end: 20200707
  7. MYCOPHENOLATE [Concomitant]
     Active Substance: MYCOPHENOLIC ACID
     Indication: IMMUNOSUPPRESSION
     Dosage: 720 MG, EVERY 12 HOURS (2 CAPSULES OF 360 MG)
     Route: 048
     Dates: start: 20200118
  8. TACROLIMUS. [Suspect]
     Active Substance: TACROLIMUS
     Indication: RENAL TRANSPLANT
     Route: 048
     Dates: start: 20200118, end: 20200224
  9. MYCOPHENOLATE SODIUM [Concomitant]
     Active Substance: MYCOPHENOLATE SODIUM
     Indication: RENAL TRANSPLANT
     Route: 048
  10. PREDNISOLONE. [Concomitant]
     Active Substance: PREDNISOLONE
     Indication: RENAL TRANSPLANT
     Route: 048

REACTIONS (15)
  - Pyelonephritis [Not Recovered/Not Resolved]
  - Post procedural infection [Unknown]
  - Renal graft infection [Recovered/Resolved]
  - Oophoritis [Recovered/Resolved]
  - Pyrexia [Recovered/Resolved]
  - Kidney transplant rejection [Recovering/Resolving]
  - Graft complication [Recovered/Resolved]
  - Histology abnormal [Not Recovered/Not Resolved]
  - Device related infection [Unknown]
  - Blood creatinine increased [Recovered/Resolved]
  - Pyelonephritis [Recovered/Resolved]
  - Vascular occlusion [Recovering/Resolving]
  - Blood creatinine increased [Recovering/Resolving]
  - Complications of transplanted kidney [Recovering/Resolving]
  - Lymphocele [Not Recovered/Not Resolved]

NARRATIVE: CASE EVENT DATE: 20200217
